FAERS Safety Report 7302700-2 (Version None)
Quarter: 2011Q1

REPORT INFORMATION
  Report Type: 
  Country: None (occurrence: None)
  Receive Date: 20110218
  Receipt Date: 20110215
  Transmission Date: 20110831
  Serious: Yes (Other)
  Sender: FDA-Public Use
  Company Number: US-PFIZER INC-2011001547

PATIENT
  Age: 28 Year
  Sex: Female
  Weight: 63.4 kg

DRUGS (1)
  1. ADVIL COLD AND SINUS [Suspect]
     Indication: NASAL CONGESTION
     Dosage: 1 TO 2 CAPLETS, EVERY 4 HOURS
     Route: 048
     Dates: start: 20101227, end: 20101231

REACTIONS (9)
  - EXAGGERATED STARTLE RESPONSE [None]
  - ABDOMINAL PAIN [None]
  - DIARRHOEA [None]
  - ANXIETY [None]
  - NASAL INFLAMMATION [None]
  - HALLUCINATION [None]
  - ABDOMINAL DISTENSION [None]
  - HEART RATE INCREASED [None]
  - VAGINAL HAEMORRHAGE [None]
